FAERS Safety Report 11686260 (Version 2)
Quarter: 2015Q4

REPORT INFORMATION
  Report Type: Spontaneous
  Country: JP (occurrence: JP)
  Receive Date: 20151030
  Receipt Date: 20151111
  Transmission Date: 20160304
  Serious: Yes (Hospitalization, Other)
  Sender: FDA-Public Use
  Company Number: JP-GLAXOSMITHKLINE-JP2015JPN152152

PATIENT
  Age: 57 Year
  Sex: Female

DRUGS (5)
  1. LYRICA [Concomitant]
     Active Substance: PREGABALIN
  2. VALACICLOVIR HYDROCHLORIDE [Suspect]
     Active Substance: VALACYCLOVIR HYDROCHLORIDE
  3. ZOVIRAX [Suspect]
     Active Substance: ACYCLOVIR
     Dosage: 250 MG, 1D
     Route: 065
  4. ZOVIRAX [Suspect]
     Active Substance: ACYCLOVIR
     Dosage: 375 MG, 1D
  5. METHYCOBAL [Concomitant]
     Active Substance: METHYLCOBALAMIN

REACTIONS (6)
  - Acute kidney injury [Recovering/Resolving]
  - Decreased appetite [Recovering/Resolving]
  - Altered state of consciousness [Recovering/Resolving]
  - Feeling abnormal [Recovering/Resolving]
  - Anuria [Recovering/Resolving]
  - Somnolence [Recovering/Resolving]
